FAERS Safety Report 22835017 (Version 2)
Quarter: 2023Q4

REPORT INFORMATION
  Report Type: Spontaneous
  Country: AT (occurrence: AT)
  Receive Date: 20230818
  Receipt Date: 20231206
  Transmission Date: 20240109
  Serious: Yes (Other)
  Sender: FDA-Public Use
  Company Number: AT-STRIDES ARCOLAB LIMITED-2023SP013203

PATIENT
  Age: 17 Year
  Sex: Male
  Weight: 63 kg

DRUGS (3)
  1. METOCLOPRAMIDE [Interacting]
     Active Substance: METOCLOPRAMIDE
     Indication: Gastroenteritis
     Dosage: 10 MILLIGRAM (INITIAL DOSE)
     Route: 065
  2. METOCLOPRAMIDE [Interacting]
     Active Substance: METOCLOPRAMIDE
     Dosage: 10 MILLIGRAM (THREE 10MG DOSES OF METOCLOPRAMIDE THAT WERE ADMINISTERED AT INTERVALS OF 4 AND 5H)
     Route: 065
  3. PANTOPRAZOLE [Interacting]
     Active Substance: PANTOPRAZOLE
     Indication: Gastroenteritis
     Dosage: 40 MILLIGRAM, QD
     Route: 065

REACTIONS (4)
  - Drug interaction [Unknown]
  - Oculogyric crisis [Unknown]
  - Dystonia [Recovered/Resolved]
  - Drug ineffective for unapproved indication [Unknown]
